FAERS Safety Report 4307702-6 (Version None)
Quarter: 2004Q1

REPORT INFORMATION
  Report Type: 
  Country: None (occurrence: None)
  Receive Date: 20040226
  Receipt Date: 20040217
  Transmission Date: 20041129
  Serious: Yes (Other)
  Sender: FDA-Public Use
  Company Number: GBWYE594019FEB04

PATIENT
  Age: 28 Year
  Sex: Female

DRUGS (3)
  1. MINOCIN [Suspect]
     Indication: ACNE
     Dosage: ORAL
     Route: 048
     Dates: start: 20020801, end: 20020801
  2. DOXYCYCLINE [Concomitant]
  3. ERYTHROMYCIN [Concomitant]

REACTIONS (3)
  - ALOPECIA TOTALIS [None]
  - MENTAL DISORDER [None]
  - SOCIAL PROBLEM [None]
